FAERS Safety Report 10114663 (Version 2)
Quarter: 2015Q1

REPORT INFORMATION
  Report Type: Other
  Country: US (occurrence: US)
  Receive Date: 20140426
  Receipt Date: 20150219
  Transmission Date: 20150720
  Serious: Yes (Hospitalization, Other)
  Sender: FDA-Public Use
  Company Number: US-GSKPPD-2014GSK018145

PATIENT
  Age: 63 Year
  Sex: Male
  Weight: 128.03 kg

DRUGS (9)
  1. AVANDIA [Suspect]
     Active Substance: ROSIGLITAZONE MALEATE
     Indication: DIABETES MELLITUS
     Dosage: DATES OF AVANDIA USE COULD NOT BE CONFIRMED IN RECORDS REVIEWED.
     Route: 048
  2. FUROSEMIDE. [Concomitant]
     Active Substance: FUROSEMIDE
  3. TRICOR [Concomitant]
     Active Substance: FENOFIBRATE
  4. CRESTOR [Concomitant]
     Active Substance: ROSUVASTATIN CALCIUM
  5. NIFEDICAL HC [Concomitant]
  6. ASPIRIN. [Concomitant]
     Active Substance: ASPIRIN
     Route: 048
  7. COREG [Concomitant]
     Active Substance: CARVEDILOL
  8. LISINOPRIL. [Concomitant]
     Active Substance: LISINOPRIL
  9. DIGITEK [Concomitant]
     Active Substance: DIGOXIN

REACTIONS (1)
  - Acute myocardial infarction [Recovered/Resolved]

NARRATIVE: CASE EVENT DATE: 20090526
